FAERS Safety Report 21496359 (Version 2)
Quarter: 2022Q4

REPORT INFORMATION
  Report Type: Report from Study
  Country: US (occurrence: US)
  Receive Date: 20221022
  Receipt Date: 20221104
  Transmission Date: 20230113
  Serious: No
  Sender: FDA-Public Use
  Company Number: US-ABBVIE-4146778

PATIENT
  Sex: Male

DRUGS (1)
  1. HUMIRA [Suspect]
     Active Substance: ADALIMUMAB
     Indication: Rheumatoid arthritis
     Dosage: CITRATE FREE
     Route: 058
     Dates: start: 20220727, end: 20220831

REACTIONS (3)
  - Thermal burn [Unknown]
  - Adverse drug reaction [Unknown]
  - Headache [Unknown]

NARRATIVE: CASE EVENT DATE: 20220101
